FAERS Safety Report 17028133 (Version 3)
Quarter: 2020Q1

REPORT INFORMATION
  Report Type: Spontaneous
  Country: CZ (occurrence: CZ)
  Receive Date: 20191113
  Receipt Date: 20200127
  Transmission Date: 20200409
  Serious: Yes (Hospitalization, Other)
  Sender: FDA-Public Use
  Company Number: CZ-MYLANLABS-2019M1108209

PATIENT
  Age: 67 Year
  Sex: Female
  Weight: 78 kg

DRUGS (13)
  1. ZOLPIDEM [Suspect]
     Active Substance: ZOLPIDEM TARTRATE
     Indication: ANTIDEPRESSANT THERAPY
     Dosage: 20 MILLIGRAM, QD
     Route: 048
  2. GUAIFENESIN. [Concomitant]
     Active Substance: GUAIFENESIN
     Indication: BACK PAIN
  3. KOFFEIN [Concomitant]
     Indication: CENTRAL NERVOUS SYSTEM STIMULATION
     Dosage: UNK
     Route: 065
  4. ZOLPIDEM [Suspect]
     Active Substance: ZOLPIDEM TARTRATE
     Indication: INSOMNIA
     Dosage: 30 MILLIGRAM, QD
     Route: 065
  5. GUAIFENESIN. [Concomitant]
     Active Substance: GUAIFENESIN
     Indication: PRODUCTIVE COUGH
  6. INSULIN [Concomitant]
     Active Substance: INSULIN NOS
     Indication: DIABETES MELLITUS
     Dosage: UNK
     Route: 065
  7. METFORMIN [Concomitant]
     Active Substance: METFORMIN HYDROCHLORIDE
     Indication: DIABETES MELLITUS
     Dosage: UNK
     Route: 065
  8. PARACETAMOL [Concomitant]
     Active Substance: ACETAMINOPHEN
     Indication: BACK PAIN
  9. PARACETAMOL [Concomitant]
     Active Substance: ACETAMINOPHEN
     Indication: ANALGESIC THERAPY
     Dosage: UNK
     Route: 065
  10. KOFFEIN [Concomitant]
     Indication: BACK PAIN
  11. GUAIFENESIN. [Concomitant]
     Active Substance: GUAIFENESIN
     Indication: MUSCLE RELAXANT THERAPY
     Dosage: UNK
     Route: 065
  12. ZOLPIDEM [Suspect]
     Active Substance: ZOLPIDEM TARTRATE
     Indication: HYPOSOMNIA
     Dosage: 10 MILLIGRAM, QD
     Route: 065
  13. GUAIFENESIN. [Concomitant]
     Active Substance: GUAIFENESIN
     Indication: ANXIOLYTIC THERAPY

REACTIONS (12)
  - Psychomotor retardation [Recovered/Resolved]
  - Insomnia [Unknown]
  - Therapeutic product effect incomplete [Unknown]
  - Abulia [Unknown]
  - Decreased appetite [Unknown]
  - Anhedonia [Unknown]
  - Depressed mood [Recovering/Resolving]
  - Anxiety [Unknown]
  - Fatigue [Unknown]
  - Intentional product use issue [Unknown]
  - Suicidal ideation [Recovering/Resolving]
  - Terminal insomnia [Recovered/Resolved]
